FAERS Safety Report 19530098 (Version 2)
Quarter: 2021Q4

REPORT INFORMATION
  Report Type: Report from Study
  Country: US (occurrence: US)
  Receive Date: 20210713
  Receipt Date: 20211005
  Transmission Date: 20220303
  Serious: Yes (Life-Threatening, Other)
  Sender: FDA-Public Use
  Company Number: NVSC2021US156151

PATIENT
  Sex: Female

DRUGS (1)
  1. COSENTYX [Suspect]
     Active Substance: SECUKINUMAB
     Indication: Psoriatic arthropathy
     Dosage: 150 MG, Q4W
     Route: 058

REACTIONS (6)
  - Feeling abnormal [Unknown]
  - Vein rupture [Unknown]
  - Hypersensitivity [Unknown]
  - Skin discolouration [Unknown]
  - Anger [Unknown]
  - Depressed mood [Unknown]
